FAERS Safety Report 4990462-3 (Version None)
Quarter: 2006Q2

REPORT INFORMATION
  Report Type: 
  Country: None (occurrence: None)
  Receive Date: 20060502
  Receipt Date: 20060502
  Transmission Date: 20061013
  Serious: Yes (Hospitalization)
  Sender: FDA-Public Use
  Company Number: None

PATIENT
  Age: 78 Year
  Sex: Male
  Weight: 72.4 kg

DRUGS (2)
  1. METOPROLOL TARTRATE [Suspect]
     Indication: ATRIAL FIBRILLATION
     Dosage: 100MG   BID   PO
     Route: 048
  2. METOPROLOL TARTRATE [Suspect]
     Indication: CARDIAC FAILURE CONGESTIVE
     Dosage: 100MG   BID   PO
     Route: 048

REACTIONS (16)
  - ANAEMIA [None]
  - ASTHENIA [None]
  - ATRIAL FIBRILLATION [None]
  - BLOOD THYROID STIMULATING HORMONE INCREASED [None]
  - BRADYCARDIA [None]
  - CARDIAC FAILURE CONGESTIVE [None]
  - DRUG EFFECT DECREASED [None]
  - DYSPNOEA [None]
  - HYPOTHYROIDISM [None]
  - LEUKOCYTOSIS [None]
  - MYOCARDIAL INFARCTION [None]
  - OCCULT BLOOD POSITIVE [None]
  - RENAL FAILURE CHRONIC [None]
  - THYROXINE FREE DECREASED [None]
  - TRI-IODOTHYRONINE FREE DECREASED [None]
  - TROPONIN INCREASED [None]
